FAERS Safety Report 12470925 (Version 1)
Quarter: 2016Q2

REPORT INFORMATION
  Report Type: Report from Study
  Country: AR (occurrence: AR)
  Receive Date: 20160616
  Receipt Date: 20160616
  Transmission Date: 20160815
  Serious: Yes (Death, Hospitalization)
  Sender: FDA-Public Use
  Company Number: PHHY2016AR082215

PATIENT
  Sex: Male

DRUGS (1)
  1. ULTIBRO BREEZHALER [Suspect]
     Active Substance: GLYCOPYRRONIUM\INDACATEROL
     Indication: PULMONARY FIBROSIS
     Dosage: UNK (MAY BE 2 TIMES A DAY)
     Route: 065

REACTIONS (5)
  - Cardiac arrest [Fatal]
  - General physical health deterioration [Fatal]
  - Product use issue [Unknown]
  - Fatigue [Fatal]
  - Drug intolerance [Fatal]
